FAERS Safety Report 8229878-0 (Version None)
Quarter: 2012Q1

REPORT INFORMATION
  Report Type: 
  Country: None (occurrence: None)
  Receive Date: 20120323
  Receipt Date: 20120314
  Transmission Date: 20120608
  Serious: Yes (Hospitalization)
  Sender: FDA-Public Use
  Company Number: US-BIOGENIDEC-2012BI004986

PATIENT
  Age: 60 Year
  Sex: Female

DRUGS (2)
  1. TYSABRI [Suspect]
     Route: 042
     Dates: start: 20090610, end: 20120210
  2. TYSABRI [Suspect]
     Indication: MULTIPLE SCLEROSIS
     Route: 042
     Dates: start: 20080421, end: 20090506

REACTIONS (5)
  - DYSKINESIA [None]
  - ABASIA [None]
  - MULTIPLE SCLEROSIS RELAPSE [None]
  - MOBILITY DECREASED [None]
  - MIDDLE INSOMNIA [None]
